FAERS Safety Report 9616882 (Version 1)
Quarter: 2013Q4

REPORT INFORMATION
  Report Type: Report from Study
  Country: BR (occurrence: BR)
  Receive Date: 20131011
  Receipt Date: 20131011
  Transmission Date: 20140711
  Serious: Yes (Other)
  Sender: FDA-Public Use
  Company Number: PHHY2013BR111520

PATIENT
  Age: 69 Year
  Sex: Male

DRUGS (4)
  1. FORASEQ [Suspect]
     Dosage: UNK UKN, UNK
     Dates: start: 2009
  2. SPIRIVA [Concomitant]
     Dosage: 16 UG, UNK
     Dates: start: 2009
  3. SPIRIVA [Concomitant]
     Dosage: 2.5 UG, UNK
     Dates: start: 201111
  4. BAMIFIX [Concomitant]
     Dosage: UNK UKN, UNK
     Dates: start: 2009

REACTIONS (21)
  - Emphysema [Unknown]
  - Lung hyperinflation [Unknown]
  - Myocardial ischaemia [Unknown]
  - Glaucoma [Unknown]
  - Mitral valve incompetence [Unknown]
  - Left ventricular hypertrophy [Unknown]
  - Left atrial hypertrophy [Unknown]
  - Ventricular hypokinesia [Unknown]
  - Diastolic dysfunction [Unknown]
  - Tricuspid valve incompetence [Unknown]
  - Aortic valve incompetence [Unknown]
  - Respiratory tract infection [Unknown]
  - Condition aggravated [Unknown]
  - Oedema peripheral [Unknown]
  - Dyspnoea [Unknown]
  - Haemoptysis [Unknown]
  - Bronchiectasis [Unknown]
  - Asthenia [Unknown]
  - Lung disorder [Unknown]
  - Obstructive airways disorder [Unknown]
  - Hypertension [Unknown]
